FAERS Safety Report 18010554 (Version 1)
Quarter: 2020Q3

REPORT INFORMATION
  Report Type: Spontaneous
  Country: AU (occurrence: AU)
  Receive Date: 20200711
  Receipt Date: 20200711
  Transmission Date: 20201103
  Serious: Yes (Death, Hospitalization)
  Sender: FDA-Public Use
  Company Number: NVSC2019AU082087

PATIENT
  Age: 14 Year

DRUGS (1)
  1. KYMRIAH [Suspect]
     Active Substance: TISAGENLECLEUCEL
     Indication: PRODUCT USED FOR UNKNOWN INDICATION
     Dosage: UNK
     Route: 065
     Dates: start: 20191219

REACTIONS (8)
  - Cytokine release syndrome [Recovered/Resolved]
  - Hypotension [Unknown]
  - Hypoxia [Unknown]
  - Disseminated intravascular coagulation [Unknown]
  - Pyrexia [Unknown]
  - Disease progression [Fatal]
  - Disease recurrence [Fatal]
  - Tachycardia [Unknown]

NARRATIVE: CASE EVENT DATE: 202007
